FAERS Safety Report 4673129-0 (Version None)
Quarter: 2005Q2

REPORT INFORMATION
  Report Type: 
  Country: None (occurrence: None)
  Receive Date: 20050525
  Receipt Date: 20050513
  Transmission Date: 20051028
  Serious: Yes (Hospitalization)
  Sender: FDA-Public Use
  Company Number: JP-JNJFOC-20050503162

PATIENT
  Age: 36 Year
  Sex: Female

DRUGS (10)
  1. HALDOL [Suspect]
  2. HALDOL [Suspect]
  3. HALDOL [Suspect]
  4. BROMPERIDOL [Suspect]
     Dosage: 6-9 MG DAILY
  5. ZOTEPINE [Suspect]
     Dosage: 50-200 MG DAILY (100 MG AT THE TIME OF THE EVENT)
  6. PEROSPIRONE [Suspect]
     Dosage: 16-36 MG DAILY (36 MG AT THE TIME OF THE EVENT)
  7. OLANZAPINE [Suspect]
  8. OLANZAPINE [Suspect]
  9. CLONAZEPAM [Suspect]
     Indication: DRUG USE FOR UNKNOWN INDICATION
  10. TRIHEXYPHENIDYL HCL [Suspect]
     Indication: DRUG USE FOR UNKNOWN INDICATION

REACTIONS (3)
  - ATRIAL THROMBOSIS [None]
  - ELECTROCARDIOGRAM ST-T CHANGE [None]
  - TACHYCARDIA [None]
